FAERS Safety Report 21143064 (Version 2)
Quarter: 2022Q3

REPORT INFORMATION
  Report Type: Spontaneous
  Country: US (occurrence: US)
  Receive Date: 20220728
  Receipt Date: 20220729
  Transmission Date: 20221026
  Serious: No
  Sender: FDA-Public Use
  Company Number: US-PFIZER INC-202201014297

PATIENT

DRUGS (1)
  1. PAXLOVID [Suspect]
     Active Substance: NIRMATRELVIR\RITONAVIR
     Indication: COVID-19 treatment
     Dosage: UNK UNK, 2X/DAY (NOON TIME LIKE 1 PM/SECOND DOSE IN THE NIGHT TIME)

REACTIONS (4)
  - Dysgeusia [Unknown]
  - Dyspnoea [Unknown]
  - Nasal obstruction [Unknown]
  - Off label use [Unknown]
